FAERS Safety Report 11100078 (Version 5)
Quarter: 2015Q2

REPORT INFORMATION
  Report Type: Report from Study
  Country: US (occurrence: US)
  Receive Date: 20150508
  Receipt Date: 20150527
  Transmission Date: 20150821
  Serious: Yes (Hospitalization)
  Sender: FDA-Public Use
  Company Number: US-ROCHE-1571821

PATIENT
  Age: 42 Year
  Sex: Male
  Weight: 101.1 kg

DRUGS (4)
  1. COBIMETINIB [Suspect]
     Active Substance: COBIMETINIB
     Indication: METASTATIC MALIGNANT MELANOMA
     Dosage: MOST RECENT DOSE 60 MG OF COMBO COBIMETINIB WAS ADMINISTERED ON 28/APR/2015 PRIOR TO AE ONSET
     Route: 048
     Dates: start: 20150319
  2. MPDL3280A [Suspect]
     Active Substance: INVESTIGATIONAL PRODUCT
     Indication: METASTATIC MALIGNANT MELANOMA
     Dosage: MOST RECENT DOSE OF 800 MG  MPDL3280A WAS ADMINISTERED ON 16/APR/2015 PRIOR TO AE ONSET
     Route: 042
     Dates: start: 20150416
  3. COBIMETINIB [Suspect]
     Active Substance: COBIMETINIB
     Indication: METASTATIC MALIGNANT MELANOMA
     Dosage: MOST RECENT DOSE 60 MG OF RUN-IN COBIMETINIB WAS ADMINISTERED ON 16/APR/2015 PRIOR TO AE ONSET
     Route: 048
     Dates: start: 20150319
  4. VEMURAFENIB [Suspect]
     Active Substance: VEMURAFENIB
     Indication: METASTATIC MALIGNANT MELANOMA
     Dosage: MOST RECENT DOSE 720 MG OF COMBO VEMURAFENIB WAS ADMINISTERED ON 28/APR/2015 PRIOR TO AE ONSET
     Route: 048
     Dates: start: 20150319

REACTIONS (1)
  - Cellulitis [Not Recovered/Not Resolved]

NARRATIVE: CASE EVENT DATE: 20150428
